FAERS Safety Report 5219389-9 (Version None)
Quarter: 2007Q1

REPORT INFORMATION
  Report Type: 
  Country: None (occurrence: None)
  Receive Date: 20070125
  Receipt Date: 20060227
  Transmission Date: 20070707
  Serious: No
  Sender: FDA-Public Use
  Company Number: US-BRISTOL-MYERS SQUIBB COMPANY-13297262

PATIENT
  Age: 65 Year
  Sex: Female

DRUGS (4)
  1. IFEX [Suspect]
     Route: 042
     Dates: start: 20060206
  2. MESNA [Suspect]
  3. ZOFRAN [Concomitant]
     Route: 048
  4. DEXAMETHASONE [Concomitant]
     Route: 048

REACTIONS (1)
  - HAEMATURIA [None]
